FAERS Safety Report 8060891-2 (Version None)
Quarter: 2012Q1

REPORT INFORMATION
  Report Type: 
  Country: None (occurrence: None)
  Receive Date: 20120120
  Receipt Date: 20110301
  Transmission Date: 20120608
  Serious: No
  Sender: FDA-Public Use
  Company Number: US-ALLERGAN-1102904US

PATIENT
  Age: 90 Year
  Sex: Female

DRUGS (2)
  1. TRAVATAN [Concomitant]
     Indication: INTRAOCULAR PRESSURE INCREASED
     Dosage: UNK
  2. RESTASIS [Suspect]
     Indication: EYE DISORDER
     Dosage: 1 GTT, BID
     Route: 047
     Dates: start: 20110222, end: 20110224

REACTIONS (2)
  - VISION BLURRED [None]
  - EYE PAIN [None]
